FAERS Safety Report 9628322 (Version 2)
Quarter: 2013Q4

REPORT INFORMATION
  Report Type: Spontaneous
  Country: IT (occurrence: IT)
  Receive Date: 20131017
  Receipt Date: 20131018
  Transmission Date: 20140711
  Serious: Yes (Other)
  Sender: FDA-Public Use
  Company Number: PHHY2013IT115191

PATIENT
  Age: 65 Year
  Sex: Male

DRUGS (1)
  1. AFINITOR [Suspect]
     Indication: PANCREATIC NEUROENDOCRINE TUMOUR METASTATIC
     Dosage: 10 MG, UNK
     Dates: start: 20110422, end: 201305

REACTIONS (1)
  - Cardiac failure [Recovered/Resolved with Sequelae]
